FAERS Safety Report 10430796 (Version 1)
Quarter: 2014Q3

REPORT INFORMATION
  Report Type: Spontaneous
  Country: TH (occurrence: TH)
  Receive Date: 20140904
  Receipt Date: 20140904
  Transmission Date: 20150326
  Serious: Yes (Death, Other)
  Sender: FDA-Public Use
  Company Number: PHHY2014TH110129

PATIENT
  Age: 15 Month
  Sex: Male

DRUGS (1)
  1. CAFFEINE CITRATE,ERGOTAMINE TARTRATE [Suspect]
     Active Substance: CAFFEINE CITRATE\ERGOTAMINE TARTRATE

REACTIONS (3)
  - Depressed level of consciousness [Unknown]
  - Ergot poisoning [Unknown]
  - Status epilepticus [Fatal]
